FAERS Safety Report 5678889-8 (Version None)
Quarter: 2008Q1

REPORT INFORMATION
  Report Type: 
  Country: None (occurrence: None)
  Receive Date: 20080325
  Receipt Date: 20080228
  Transmission Date: 20080703
  Serious: No
  Sender: FDA-Public Use
  Company Number: US-BAYER-200815777NA

PATIENT
  Age: 55 Year
  Sex: Female

DRUGS (7)
  1. LEUKINE(LYOPHILIZED POWDER 250 MCG/ML) [Suspect]
     Indication: DRUG USE FOR UNKNOWN INDICATION
     Route: 058
     Dates: start: 20080209
  2. NEURONTIN [Concomitant]
     Indication: NEUROPATHY PERIPHERAL
     Dosage: TOTAL DAILY DOSE: 600 MG
     Route: 048
  3. CATAPRES [Concomitant]
     Indication: HYPERTENSION
     Route: 062
  4. M.V.I. [Concomitant]
     Route: 048
  5. PROCRIT [Concomitant]
     Indication: ANAEMIA
  6. DECADRON [Concomitant]
     Indication: CHEMOTHERAPY
     Route: 048
  7. AMBIEN [Concomitant]
     Route: 048

REACTIONS (3)
  - CHEST PAIN [None]
  - PAIN [None]
  - TREMOR [None]
